FAERS Safety Report 5745346-X (Version None)
Quarter: 2008Q2

REPORT INFORMATION
  Report Type: 
  Country: None (occurrence: None)
  Receive Date: 20080521
  Receipt Date: 20080508
  Transmission Date: 20081010
  Serious: Yes (Other)
  Sender: FDA-Public Use
  Company Number: US-MERCK-0805USA01927

PATIENT
  Age: 67 Year
  Sex: Female

DRUGS (5)
  1. ZOCOR [Suspect]
     Indication: BLOOD CHOLESTEROL INCREASED
     Route: 048
     Dates: start: 20000101
  2. PREVACID [Concomitant]
     Route: 065
  3. ZETIA [Concomitant]
     Route: 048
  4. ASPIRIN [Concomitant]
     Route: 065
  5. SYNTHROID [Concomitant]
     Route: 065

REACTIONS (4)
  - CARDIAC DISORDER [None]
  - DIZZINESS [None]
  - NAUSEA [None]
  - VOMITING [None]
